FAERS Safety Report 6919771-5 (Version None)
Quarter: 2010Q3

REPORT INFORMATION
  Report Type: 
  Country: None (occurrence: None)
  Receive Date: 20100811
  Receipt Date: 20100728
  Transmission Date: 20110219
  Serious: Yes (Hospitalization)
  Sender: FDA-Public Use
  Company Number: US-ELI_LILLY_AND_COMPANY-US201007007532

PATIENT
  Sex: Female

DRUGS (2)
  1. FORTEO [Suspect]
     Indication: OSTEOPOROSIS
     Dosage: 20 UG, UNKNOWN
  2. FORTEO [Suspect]
     Dosage: 20 UG, UNKNOWN
     Dates: start: 20100727

REACTIONS (6)
  - AMNESIA [None]
  - CONFUSIONAL STATE [None]
  - GASTRITIS [None]
  - PANCREATITIS [None]
  - PYREXIA [None]
  - URINARY TRACT INFECTION [None]
